FAERS Safety Report 5709893-9 (Version None)
Quarter: 2008Q2

REPORT INFORMATION
  Report Type: 
  Country: None (occurrence: None)
  Receive Date: 20080418
  Receipt Date: 20070502
  Transmission Date: 20081010
  Serious: No
  Sender: FDA-Public Use
  Company Number: US-ASTRAZENECA-2007UW09377

PATIENT
  Age: 70 Year
  Sex: Male
  Weight: 79.4 kg

DRUGS (5)
  1. TOPROL-XL [Suspect]
     Indication: HYPERTENSION
     Route: 048
     Dates: start: 20040101
  2. TOPROL-XL [Suspect]
     Route: 048
     Dates: start: 20070201
  3. ZOCOR [Concomitant]
  4. LOTREL [Concomitant]
  5. AVALIDE [Concomitant]

REACTIONS (1)
  - VISION BLURRED [None]
